FAERS Safety Report 5782938-6 (Version None)
Quarter: 2008Q2

REPORT INFORMATION
  Report Type: 
  Country: None (occurrence: None)
  Receive Date: 20080624
  Receipt Date: 20080619
  Transmission Date: 20081010
  Serious: Yes (Hospitalization)
  Sender: FDA-Public Use
  Company Number: US-BRISTOL-MYERS SQUIBB COMPANY-14234371

PATIENT
  Age: 58 Year
  Sex: Male
  Weight: 116 kg

DRUGS (14)
  1. SINEMET [Suspect]
     Indication: PARKINSON'S DISEASE
     Dosage: 1 DOSAGE FORM=25-100MG,8 TABLETS DAILY; BEGAN ABOUT 15 YEARS AGO; TAKEN FOR LAST 7-10 YEARS.
  2. LOPRESSOR [Concomitant]
  3. PROCARDIA [Concomitant]
  4. DARVOCET [Concomitant]
  5. CYCLOBENZAPRINE HCL [Concomitant]
  6. LORAZEPAM [Concomitant]
  7. ELAVIL [Concomitant]
  8. COMTAN [Concomitant]
  9. MULTI-VITAMIN [Concomitant]
  10. HYDROCHLOROTHIAZIDE [Concomitant]
     Indication: OEDEMA PERIPHERAL
  11. HYDROCHLOROTHIAZIDE [Concomitant]
     Indication: BLISTER
  12. AMANTADINE HCL [Concomitant]
  13. CHLOR-TRIMETON [Concomitant]
  14. MIRALAX [Concomitant]
     Indication: CONSTIPATION

REACTIONS (4)
  - BLOOD GLUCOSE INCREASED [None]
  - CELLULITIS [None]
  - CONSTIPATION [None]
  - DIARRHOEA [None]
